FAERS Safety Report 9058745 (Version 1)
Quarter: 2013Q1

REPORT INFORMATION
  Report Type: Spontaneous
  Country: US (occurrence: US)
  Receive Date: 20130204
  Receipt Date: 20130204
  Transmission Date: 20140127
  Serious: Yes (Other)
  Sender: FDA-Public Use
  Company Number: US-ASTRAZENECA-2013SE06618

PATIENT
  Age: 42 Year
  Sex: Female

DRUGS (4)
  1. METOPROLOL [Suspect]
     Indication: TACHYCARDIA
     Route: 048
  2. METOPROLOL [Suspect]
     Indication: HEART RATE IRREGULAR
     Route: 048
  3. SEROQUEL XR [Suspect]
     Indication: BIPOLAR DISORDER
     Route: 048
     Dates: start: 20110526, end: 201105
  4. LITHIUM [Concomitant]

REACTIONS (10)
  - Thyroid neoplasm [Recovered/Resolved]
  - Tachycardia [Not Recovered/Not Resolved]
  - Heart rate increased [Unknown]
  - Tremor [Not Recovered/Not Resolved]
  - Dysphagia [Unknown]
  - Muscle spasms [Unknown]
  - Ventricular extrasystoles [Recovering/Resolving]
  - Heart rate irregular [Recovering/Resolving]
  - Fatigue [Unknown]
  - Off label use [Unknown]
